FAERS Safety Report 5098704-3 (Version None)
Quarter: 2006Q3

REPORT INFORMATION
  Report Type: 
  Country: None (occurrence: None)
  Receive Date: 20060907
  Receipt Date: 20060828
  Transmission Date: 20061208
  Serious: Yes (Other)
  Sender: FDA-Public Use
  Company Number: 2006AC01588

PATIENT
  Age: 47 Year
  Sex: Female

DRUGS (1)
  1. BUPIVACAINE [Suspect]
     Indication: SPINAL ANAESTHESIA
     Dosage: HYPERBARIC
     Route: 037

REACTIONS (5)
  - BUTTOCK PAIN [None]
  - NEUROLOGICAL SYMPTOM [None]
  - PAIN IN EXTREMITY [None]
  - PARAESTHESIA [None]
  - POST PROCEDURAL COMPLICATION [None]
